FAERS Safety Report 8770294 (Version 3)
Quarter: 2012Q4

REPORT INFORMATION
  Report Type: 
  Country: NO (occurrence: NO)
  Receive Date: 20120904
  Receipt Date: 20120926
  Transmission Date: 20130627
  Serious: Yes (Hospitalization, Other)
  Sender: FDA-Public Use
  Company Number: NO-ROCHE-1109668

PATIENT
  Sex: Female

DRUGS (6)
  1. RITUXIMAB [Suspect]
     Indication: WEGENER^S GRANULOMATOSIS
     Route: 065
     Dates: start: 2008
  2. RITUXIMAB [Suspect]
     Dosage: (1 gram x 1)
     Route: 065
  3. RITUXIMAB [Suspect]
     Route: 042
  4. CYCLOPHOSPHAMIDE [Suspect]
     Indication: WEGENER^S GRANULOMATOSIS
     Route: 042
  5. PREDNISOLONE [Suspect]
     Indication: WEGENER^S GRANULOMATOSIS
     Route: 065
     Dates: start: 2008
  6. MYCOPHENOLATE MOFETIL [Concomitant]
     Indication: WEGENER^S GRANULOMATOSIS

REACTIONS (2)
  - Infection [Unknown]
  - Hypogammaglobulinaemia [Recovering/Resolving]
